FAERS Safety Report 5722683-6 (Version None)
Quarter: 2008Q2

REPORT INFORMATION
  Report Type: 
  Country: None (occurrence: None)
  Receive Date: 20080429
  Receipt Date: 20071210
  Transmission Date: 20081010
  Serious: No
  Sender: FDA-Public Use
  Company Number: US-ASTRAZENECA-2007UW28049

PATIENT
  Sex: Male

DRUGS (10)
  1. NEXIUM [Suspect]
     Indication: DYSPEPSIA
     Route: 048
  2. NEXIUM [Suspect]
     Route: 048
     Dates: start: 20071205
  3. SPIRA [Concomitant]
  4. ADVAIR HFA [Concomitant]
  5. LIPITOR [Concomitant]
  6. VERAPAMIL [Concomitant]
  7. LISINOPRIL [Concomitant]
     Route: 048
  8. VITAMIN B-12 [Concomitant]
  9. ASCORBIC ACID [Concomitant]
  10. CALCIUM [Concomitant]

REACTIONS (5)
  - ARTHRALGIA [None]
  - DIARRHOEA [None]
  - DIZZINESS [None]
  - SENSORY DISTURBANCE [None]
  - STOMACH DISCOMFORT [None]
